FAERS Safety Report 14025070 (Version 2)
Quarter: 2017Q4

REPORT INFORMATION
  Report Type: Spontaneous
  Country: AT (occurrence: AT)
  Receive Date: 20170929
  Receipt Date: 20171023
  Transmission Date: 20180321
  Serious: Yes (Death, Other)
  Sender: FDA-Public Use
  Company Number: AT-ALEXION PHARMACEUTICALS INC.-A201710787

PATIENT
  Age: 4 Month
  Sex: Male

DRUGS (5)
  1. STRENSIQ [Suspect]
     Active Substance: ASFOTASE ALFA
     Dosage: 1.5 MG/KG, QD
     Route: 065
  2. STRENSIQ [Suspect]
     Active Substance: ASFOTASE ALFA
     Dosage: 2 MG/KG, TID
     Route: 065
  3. STRENSIQ [Suspect]
     Active Substance: ASFOTASE ALFA
     Indication: HYPOPHOSPHATASIA
     Dosage: 1 MG/KG, QD
     Route: 065
     Dates: start: 20170424
  4. PYRIDOXINE [Concomitant]
     Active Substance: PYRIDOXINE
     Indication: NEUROLOGICAL DECOMPENSATION
  5. PYRIDOXINE [Concomitant]
     Active Substance: PYRIDOXINE
     Indication: CEREBRAL ATROPHY
     Route: 065

REACTIONS (4)
  - Blood alkaline phosphatase increased [Unknown]
  - Respiratory failure [Fatal]
  - Cerebral atrophy [Fatal]
  - Neurological decompensation [Fatal]

NARRATIVE: CASE EVENT DATE: 20170824
